FAERS Safety Report 7666289-0 (Version None)
Quarter: 2011Q3

REPORT INFORMATION
  Report Type: 
  Country: None (occurrence: None)
  Receive Date: 20110806
  Receipt Date: 20110328
  Transmission Date: 20111222
  Serious: No
  Sender: FDA-Public Use
  Company Number: US-ABBOTT-11P-163-0714962-00

PATIENT
  Sex: Male
  Weight: 143.01 kg

DRUGS (15)
  1. NIASPAN [Suspect]
  2. HUMALOG [Concomitant]
     Indication: DIABETES MELLITUS
     Dosage: 6 UNITS WITH EACH MEAL
  3. DETROL [Concomitant]
     Indication: URINARY INCONTINENCE
  4. RED YEAST RICE [Concomitant]
     Indication: BLOOD CHOLESTEROL
  5. HUMULIN R [Concomitant]
     Indication: DIABETES MELLITUS
     Dosage: 18 UNITS IN AM 18 UNITS IN PM
  6. HUMULIN R [Concomitant]
     Dosage: 10 UNITS IN AM 8 UNITS IN PM
  7. FUROSEMIDE [Concomitant]
     Indication: FLUID RETENTION
  8. HUMULIN R [Concomitant]
  9. RELAFEN [Concomitant]
     Indication: PAIN
  10. NIASPAN [Suspect]
  11. SIMVASTATIN [Concomitant]
     Indication: BLOOD CHOLESTEROL INCREASED
  12. ASPIRIN [Concomitant]
     Indication: PRODUCT USED FOR UNKNOWN INDICATION
  13. TYLENOL PM [Concomitant]
     Indication: PAIN
  14. NIASPAN [Suspect]
     Indication: HIGH DENSITY LIPOPROTEIN DECREASED
     Dates: start: 20110101
  15. DIOVAN [Concomitant]
     Indication: CARDIAC DISORDER

REACTIONS (5)
  - BLOOD GLUCOSE FLUCTUATION [None]
  - BLOOD GLUCOSE INCREASED [None]
  - FALL [None]
  - BLOOD GLUCOSE DECREASED [None]
  - SHOCK HYPOGLYCAEMIC [None]
